FAERS Safety Report 7942373-9 (Version None)
Quarter: 2011Q4

REPORT INFORMATION
  Report Type: 
  Country: None (occurrence: None)
  Receive Date: 20111128
  Receipt Date: 20111117
  Transmission Date: 20120403
  Serious: Yes (Death, Hospitalization, Other)
  Sender: FDA-Public Use
  Company Number: US-CELGENEUS-163-21880-11070755

PATIENT
  Sex: Female
  Weight: 63.56 kg

DRUGS (7)
  1. FLEXERIL [Concomitant]
     Route: 065
  2. REVLIMID [Suspect]
     Dosage: 15 MILLIGRAM
     Route: 048
  3. HYDROCODONE [Concomitant]
     Route: 065
  4. ZOFRAN [Concomitant]
     Route: 065
  5. POTASSIUM ACETATE [Concomitant]
     Dosage: 20 MILLIEQUIVALENTS
     Route: 065
  6. AMBIEN [Concomitant]
     Dosage: 12.5 MILLIGRAM
     Route: 065
  7. REVLIMID [Suspect]
     Indication: BURKITT'S LYMPHOMA
     Dosage: 20 MILLIGRAM
     Route: 048
     Dates: start: 20110627, end: 20110706

REACTIONS (5)
  - NEUTROPENIA [None]
  - BURKITT'S LYMPHOMA [None]
  - PANCYTOPENIA [None]
  - PYREXIA [None]
  - CLOSTRIDIAL INFECTION [None]
